FAERS Safety Report 7523580-6 (Version None)
Quarter: 2011Q2

REPORT INFORMATION
  Report Type: 
  Country: None (occurrence: None)
  Receive Date: 20110601
  Receipt Date: 20110601
  Transmission Date: 20111010
  Serious: Yes (Disabling)
  Sender: FDA-Public Use
  Company Number: None

PATIENT
  Age: 46 Year
  Sex: Female
  Weight: 65.318 kg

DRUGS (1)
  1. LUPRON DEPOT [Suspect]

REACTIONS (8)
  - MIGRAINE [None]
  - AFFECTIVE DISORDER [None]
  - INTRAOCULAR PRESSURE INCREASED [None]
  - EAR DISCOMFORT [None]
  - WEIGHT INCREASED [None]
  - BLOOD PRESSURE INCREASED [None]
  - VISION BLURRED [None]
  - BLOOD CHOLESTEROL INCREASED [None]
